FAERS Safety Report 7766661-4 (Version None)
Quarter: 2011Q3

REPORT INFORMATION
  Report Type: 
  Country: None (occurrence: None)
  Receive Date: 20110922
  Receipt Date: 20110909
  Transmission Date: 20111222
  Serious: No
  Sender: FDA-Public Use
  Company Number: US-JNJFOC-20110905652

PATIENT
  Sex: Male
  Weight: 97.52 kg

DRUGS (4)
  1. NORCO [Concomitant]
     Indication: BREAKTHROUGH PAIN
     Route: 048
     Dates: start: 19810101
  2. VICODIN [Concomitant]
     Indication: BREAKTHROUGH PAIN
     Route: 003
     Dates: start: 19810101
  3. ADVAIR DISKUS 100/50 [Concomitant]
     Indication: RESPIRATORY DISORDER
     Route: 048
     Dates: start: 20060101
  4. DURAGESIC-100 [Suspect]
     Indication: PAIN
     Route: 062
     Dates: start: 20080101

REACTIONS (3)
  - INSOMNIA [None]
  - PRODUCT ADHESION ISSUE [None]
  - DRUG DOSE OMISSION [None]
